FAERS Safety Report 5797372-2 (Version None)
Quarter: 2008Q3

REPORT INFORMATION
  Report Type: 
  Country: None (occurrence: None)
  Receive Date: 20080701
  Receipt Date: 20080630
  Transmission Date: 20090109
  Serious: Yes (Other)
  Sender: FDA-Public Use
  Company Number: BR-BOEHRINGER INGELHEIM GMBH, GERMANY-2008-BP-10103BR

PATIENT
  Age: 43 Year
  Sex: Female

DRUGS (1)
  1. ATENSINA [Suspect]
     Indication: HYPERTENSION
     Route: 048
     Dates: start: 20060101

REACTIONS (1)
  - HYPERTENSION [None]
